FAERS Safety Report 8918912 (Version 1)
Quarter: 2012Q4

REPORT INFORMATION
  Report Type: 
  Country: US (occurrence: US)
  Receive Date: 20121121
  Receipt Date: 20121121
  Transmission Date: 20130627
  Serious: Yes (Other)
  Sender: FDA-Public Use
  Company Number: US-PFIZER INC-K201100467

PATIENT
  Age: 53 Year
  Sex: Female

DRUGS (14)
  1. LEVOXYL [Suspect]
     Dosage: UNK
  2. GLIBENCLAMIDE [Interacting]
  3. NICODERM CQ [Interacting]
     Indication: SMOKING CESSATION THERAPY
     Dosage: 21 mg, UNK
     Route: 062
  4. LISINOPRIL [Interacting]
  5. PREDNISONE [Interacting]
  6. ATIVAN [Interacting]
  7. NICORETTE [Interacting]
     Indication: SMOKING CESSATION THERAPY
     Dosage: 4 mg, single
  8. ZOFRAN [Interacting]
  9. SYMBICORT [Interacting]
  10. PLAVIX [Interacting]
  11. ACIPHEX [Interacting]
  12. FLEXERIL [Interacting]
  13. PROZAC [Interacting]
  14. LITHIUM [Interacting]

REACTIONS (5)
  - Drug interaction [Recovered/Resolved]
  - Hallucination [Recovered/Resolved]
  - Nightmare [Recovered/Resolved]
  - Dyspepsia [Recovered/Resolved]
  - Drug administration error [Recovered/Resolved]
